FAERS Safety Report 4933533-X (Version None)
Quarter: 2006Q1

REPORT INFORMATION
  Report Type: 
  Country: None (occurrence: None)
  Receive Date: 20060306
  Receipt Date: 20060222
  Transmission Date: 20060701
  Serious: Yes (Other)
  Sender: FDA-Public Use
  Company Number: PHBS2006JP03051

PATIENT
  Age: 49 Year
  Sex: Female

DRUGS (3)
  1. NEORAL [Suspect]
     Indication: BONE MARROW TRANSPLANT
     Route: 065
  2. METHOTREXATE [Concomitant]
     Indication: BONE MARROW TRANSPLANT
  3. PREDNISOLONE [Concomitant]
     Indication: BONE MARROW TRANSPLANT
     Dosage: 15 MG/D
     Route: 065

REACTIONS (3)
  - BONE MARROW FAILURE [None]
  - CYTOMEGALOVIRUS CHORIORETINITIS [None]
  - GRAFT VERSUS HOST DISEASE [None]
